FAERS Safety Report 14182413 (Version 1)
Quarter: 2017Q4

REPORT INFORMATION
  Report Type: Report from Study
  Country: None (occurrence: US)
  Receive Date: 20171113
  Receipt Date: 20171113
  Transmission Date: 20180321
  Serious: Yes (Other)
  Sender: FDA-Public Use
  Company Number: US-ABBVIE-17K-163-2156147-00

PATIENT
  Sex: Female

DRUGS (2)
  1. HUMIRA [Suspect]
     Active Substance: ADALIMUMAB
     Indication: PSORIASIS
     Dosage: DAY 1
     Route: 058
     Dates: start: 201708, end: 201708
  2. HUMIRA [Suspect]
     Active Substance: ADALIMUMAB
     Dosage: INCLUDING DAY 8
     Route: 058
     Dates: start: 201708

REACTIONS (3)
  - Hepatic cirrhosis [Unknown]
  - Injection site pain [Unknown]
  - Pruritus [Not Recovered/Not Resolved]

NARRATIVE: CASE EVENT DATE: 2017
